FAERS Safety Report 11445370 (Version 5)
Quarter: 2016Q2

REPORT INFORMATION
  Report Type: Spontaneous
  Country: JP (occurrence: JP)
  Receive Date: 20150902
  Receipt Date: 20160621
  Transmission Date: 20160815
  Serious: Yes (Hospitalization)
  Sender: FDA-Public Use
  Company Number: JP-ASTELLAS-2015JP011207

PATIENT
  Age: 75 Year
  Sex: Male

DRUGS (5)
  1. FLUTAMIDE. [Concomitant]
     Active Substance: FLUTAMIDE
     Indication: HORMONE-REFRACTORY PROSTATE CANCER
     Dosage: UNK UNK, THRICE DAILY
     Route: 065
     Dates: end: 20150414
  2. BAYASPIRIN [Suspect]
     Active Substance: ASPIRIN
     Indication: MYOCARDIAL INFARCTION
     Route: 048
     Dates: end: 20150601
  3. XTANDI [Suspect]
     Active Substance: ENZALUTAMIDE
     Indication: HORMONE-REFRACTORY PROSTATE CANCER
     Route: 048
     Dates: start: 20150414, end: 20150525
  4. SUNRYTHM [Suspect]
     Active Substance: PILSICAINIDE HYDROCHLORIDE
     Indication: MITRAL VALVE INCOMPETENCE
     Route: 048
     Dates: end: 20150601
  5. LEUPLIN [Concomitant]
     Active Substance: LEUPROLIDE ACETATE
     Indication: HORMONE-REFRACTORY PROSTATE CANCER
     Dosage: UNK UNK, UNKNOWN FREQ.
     Route: 065
     Dates: end: 20150511

REACTIONS (4)
  - Hepatic function abnormal [Recovered/Resolved]
  - Rash generalised [Not Recovered/Not Resolved]
  - Renal impairment [Recovered/Resolved]
  - Pyrexia [Recovered/Resolved]

NARRATIVE: CASE EVENT DATE: 20150522
